FAERS Safety Report 8041117-2 (Version None)
Quarter: 2012Q1

REPORT INFORMATION
  Report Type: 
  Country: None (occurrence: None)
  Receive Date: 20120109
  Receipt Date: 20111229
  Transmission Date: 20120608
  Serious: Yes (Other)
  Sender: FDA-Public Use
  Company Number: 1000025459

PATIENT
  Age: 39 Year
  Sex: Female
  Weight: 75 kg

DRUGS (1)
  1. FOSFOMYCIN (FOSFOMYCIN TROMETAMOL) (3 GRAM, GRANULATE) [Suspect]
     Indication: URINARY TRACT INFECTION
     Dosage: (3 GM, ONCE), ORAL
     Route: 048
     Dates: start: 20110928, end: 20110928

REACTIONS (4)
  - DYSPNOEA [None]
  - FACE OEDEMA [None]
  - LIP OEDEMA [None]
  - OEDEMA PERIPHERAL [None]
